FAERS Safety Report 9922707 (Version 1)
Quarter: 2014Q1

REPORT INFORMATION
  Report Type: Spontaneous
  Country: US (occurrence: US)
  Receive Date: 20140225
  Receipt Date: 20140225
  Transmission Date: 20141002
  Serious: Yes (Other)
  Sender: FDA-Public Use
  Company Number: PHHY2014US020343

PATIENT
  Age: 59 Year
  Sex: Male

DRUGS (1)
  1. TAMSULOSIN [Suspect]
     Indication: BENIGN PROSTATIC HYPERPLASIA

REACTIONS (4)
  - Conjunctivitis [Unknown]
  - Eye irritation [Unknown]
  - Eye pain [Unknown]
  - Eye discharge [Unknown]
